FAERS Safety Report 19645885 (Version 1)
Quarter: 2021Q3

REPORT INFORMATION
  Report Type: Spontaneous
  Country: US (occurrence: US)
  Receive Date: 20210802
  Receipt Date: 20210802
  Transmission Date: 20211014
  Serious: Yes (Other)
  Sender: FDA-Public Use
  Company Number: None

PATIENT
  Age: 53 Year
  Sex: Female
  Weight: 80.55 kg

DRUGS (1)
  1. HUMIRA [Suspect]
     Active Substance: ADALIMUMAB
     Indication: PSORIATIC ARTHROPATHY
     Dosage: ?          OTHER FREQUENCY:EVERY 14 DAYS;?
     Route: 058
     Dates: start: 20210330

REACTIONS (7)
  - Diarrhoea [None]
  - Skin reaction [None]
  - Nausea [None]
  - Headache [None]
  - Injection site urticaria [None]
  - Fatigue [None]
  - Rash [None]

NARRATIVE: CASE EVENT DATE: 20210720
